FAERS Safety Report 5234438-X (Version None)
Quarter: 2007Q1

REPORT INFORMATION
  Report Type: 
  Country: None (occurrence: None)
  Receive Date: 20070209
  Receipt Date: 20070206
  Transmission Date: 20070707
  Serious: Yes (Other)
  Sender: FDA-Public Use
  Company Number: US200701005458

PATIENT
  Age: 18 Year
  Sex: Female

DRUGS (4)
  1. LAMOTRIGINE [Suspect]
  2. QUETIAPINE FUMARATE [Concomitant]
  3. VALPROATE SODIUM [Concomitant]
  4. OLANZAPINE [Concomitant]

REACTIONS (7)
  - ALANINE AMINOTRANSFERASE INCREASED [None]
  - BLOOD ALKALINE PHOSPHATASE INCREASED [None]
  - BLOOD BILIRUBIN INCREASED [None]
  - HYPERSENSITIVITY [None]
  - LIVER INJURY [None]
  - MIXED HEPATOCELLULAR-CHOLESTATIC INJURY [None]
  - TYPE IV HYPERSENSITIVITY REACTION [None]
